FAERS Safety Report 8981384 (Version 2)
Quarter: 2013Q1

REPORT INFORMATION
  Report Type: Spontaneous
  Country: US (occurrence: US)
  Receive Date: 20121221
  Receipt Date: 20130104
  Transmission Date: 20140127
  Serious: Yes (Hospitalization)
  Sender: FDA-Public Use
  Company Number: US-PFIZER INC-2012325217

PATIENT
  Age: 73 Year
  Sex: Female
  Weight: 56.69 kg

DRUGS (6)
  1. CHANTIX [Suspect]
     Indication: SMOKING CESSATION THERAPY
     Dosage: UNK
     Route: 048
  2. METOPROLOL [Concomitant]
     Indication: HYPERTENSION
     Dosage: 25 MG, 2X/DAY
  3. METOPROLOL [Concomitant]
     Dosage: UNK
  4. SIMVASTATIN [Concomitant]
     Dosage: 20 MG, DAILY
  5. SIMVASTATIN [Concomitant]
     Dosage: UNK
  6. BABY ASPIRIN [Concomitant]

REACTIONS (3)
  - Transient ischaemic attack [Recovered/Resolved]
  - Oral disorder [Unknown]
  - Speech disorder [Unknown]
